FAERS Safety Report 19185206 (Version 3)
Quarter: 2021Q3

REPORT INFORMATION
  Report Type: Spontaneous
  Country: US (occurrence: US)
  Receive Date: 20210427
  Receipt Date: 20210703
  Transmission Date: 20211014
  Serious: No
  Sender: FDA-Public Use
  Company Number: NVSC2021US094148

PATIENT
  Age: 72 Year
  Sex: Female

DRUGS (1)
  1. VOLTAREN [Suspect]
     Active Substance: DICLOFENAC SODIUM
     Indication: CARDIAC DISORDER
     Dosage: UNK
     Route: 065

REACTIONS (5)
  - Scar [Unknown]
  - Gait inability [Unknown]
  - Eating disorder [Unknown]
  - Contraindicated product administered [Unknown]
  - Off label use [Unknown]
